FAERS Safety Report 6104040-6 (Version None)
Quarter: 2009Q1

REPORT INFORMATION
  Report Type: 
  Country: None (occurrence: None)
  Receive Date: 20090305
  Receipt Date: 20090218
  Transmission Date: 20090719
  Serious: Yes (Other)
  Sender: FDA-Public Use
  Company Number: JP-PFIZER INC-2009176719

PATIENT

DRUGS (6)
  1. LIPITOR [Suspect]
     Indication: HYPERCHOLESTEROLAEMIA
     Dosage: UNK
     Route: 048
     Dates: start: 20081101, end: 20090218
  2. PLAVIX [Suspect]
     Route: 048
  3. FAMOTIDINE [Concomitant]
     Dosage: UNK
     Route: 048
     Dates: end: 20090218
  4. AMARYL [Concomitant]
     Route: 048
  5. SHEBIOL [Concomitant]
     Route: 048
  6. ASPIRIN [Concomitant]
     Route: 048

REACTIONS (1)
  - THROMBOCYTOPENIA [None]
